FAERS Safety Report 7506335-8 (Version None)
Quarter: 2011Q2

REPORT INFORMATION
  Report Type: 
  Country: None (occurrence: None)
  Receive Date: 20110526
  Receipt Date: 20100927
  Transmission Date: 20111010
  Serious: No
  Sender: FDA-Public Use
  Company Number: US-ABBOTT-10P-163-0674408-00

PATIENT
  Sex: Female
  Weight: 47.67 kg

DRUGS (26)
  1. ZEMPLAR [Suspect]
     Indication: HYPERPARATHYROIDISM SECONDARY
     Route: 048
     Dates: start: 20080101
  2. SYNTHROID [Concomitant]
     Indication: HYPOTHYROIDISM
     Route: 048
  3. FOLIC ACID [Concomitant]
     Indication: VITAMIN SUPPLEMENTATION
     Route: 048
  4. OXYCONTIN [Concomitant]
     Indication: PAIN
     Route: 048
  5. ASPIRIN [Concomitant]
     Indication: ANTICOAGULANT THERAPY
     Route: 048
  6. LASIX [Concomitant]
     Indication: DIURETIC THERAPY
  7. SENNA-MINT WAF [Concomitant]
     Indication: CONSTIPATION
  8. LACRILUBE [Concomitant]
     Indication: DRY EYE
  9. FISH OIL [Concomitant]
     Indication: BLOOD CHOLESTEROL INCREASED
  10. LIDODERM [Concomitant]
     Indication: MUSCULOSKELETAL PAIN
     Dosage: ONE PATCH ON EACH SHOULDER
     Route: 062
  11. CONTINUOUS OXYGEN THERAPY [Concomitant]
     Indication: PRODUCT USED FOR UNKNOWN INDICATION
     Dosage: 2.5 L, 24 HOURS A DAY
     Route: 045
  12. ADVAIR DISKUS 100/50 [Concomitant]
     Indication: ASTHMA
     Dosage: 100/50 BID
     Route: 055
  13. CEPHALEXIN [Concomitant]
     Indication: ANTIBIOTIC PROPHYLAXIS
  14. AVAPRO [Concomitant]
     Indication: RENAL FAILURE
     Route: 048
  15. MORPHINE [Concomitant]
     Indication: PAIN
  16. TOPROL-XL [Concomitant]
     Indication: HEART RATE IRREGULAR
  17. NEBULIZER [Concomitant]
     Indication: ASTHMA
     Route: 055
  18. REGLAN [Concomitant]
     Indication: GASTROOESOPHAGEAL REFLUX DISEASE
     Dosage: AS REQUIRED 3 IN 1 DAY
  19. ZEMPLAR [Suspect]
     Route: 048
  20. TIZANIDINE HCL [Concomitant]
     Indication: MUSCLE RELAXANT THERAPY
     Dosage: 1-2 TABS DAILY AT BEDTIME
     Route: 048
  21. PREVACID [Concomitant]
     Indication: GASTROOESOPHAGEAL REFLUX DISEASE
     Route: 048
  22. K-TAB [Concomitant]
     Indication: MINERAL SUPPLEMENTATION
     Dosage: 4 TABS BID
     Route: 048
  23. ALLOPURINOL [Concomitant]
     Indication: GOUT
     Route: 048
  24. ALBUTEROL SULFATE AUTOHALER [Concomitant]
     Indication: ASTHMA LATE ONSET
     Route: 055
  25. NASACORT AQ [Concomitant]
     Indication: PRODUCT USED FOR UNKNOWN INDICATION
     Dosage: 2 PUMPS ONCE DAILY AS REQUIRED
  26. OXYCONTIN [Concomitant]
     Indication: BREAKTHROUGH PAIN
     Route: 048

REACTIONS (7)
  - BLOOD CALCIUM ABNORMAL [None]
  - BLOOD URIC ACID INCREASED [None]
  - NAUSEA [None]
  - ASTHENIA [None]
  - FATIGUE [None]
  - VITAMIN D ABNORMAL [None]
  - DIZZINESS [None]
